FAERS Safety Report 6920792-7 (Version None)
Quarter: 2010Q3

REPORT INFORMATION
  Report Type: 
  Country: None (occurrence: None)
  Receive Date: 20100812
  Receipt Date: 20100806
  Transmission Date: 20110219
  Serious: Yes (Life-Threatening, Other)
  Sender: FDA-Public Use
  Company Number: US-JNJFOC-20100801827

PATIENT
  Sex: Male

DRUGS (2)
  1. NUCYNTA [Suspect]
     Indication: ANALGESIC THERAPY
     Route: 048
  2. EMBEDA (MORPHINE SULFATE/NALTREXONE HYDROCHLORIDE) [Concomitant]
     Indication: ANALGESIC THERAPY
     Route: 048

REACTIONS (1)
  - SUICIDE ATTEMPT [None]
